FAERS Safety Report 4958272-0 (Version None)
Quarter: 2006Q1

REPORT INFORMATION
  Report Type: 
  Country: None (occurrence: None)
  Receive Date: 20060330
  Receipt Date: 20060126
  Transmission Date: 20060701
  Serious: Yes (Hospitalization, Other)
  Sender: FDA-Public Use
  Company Number: PHBS2006JP01466

PATIENT
  Age: 73 Year
  Sex: Male

DRUGS (5)
  1. LAMISIL [Suspect]
     Indication: NAIL TINEA
     Dosage: 125 MG/DAY
     Route: 048
     Dates: start: 20020604, end: 20060106
  2. URINORM [Suspect]
     Dosage: 25 MG/DAY
     Route: 048
     Dates: start: 20060106
  3. URINORM [Suspect]
     Dosage: 50 MG/DAY
     Route: 048
     Dates: start: 20041220, end: 20060105
  4. PANALDINE [Suspect]
     Dosage: 100 MG/DAY
     Route: 048
     Dates: start: 20041220
  5. TAKEPRON [Suspect]
     Dosage: 15 MG/DAY
     Route: 048
     Dates: start: 20041220, end: 20060106

REACTIONS (4)
  - ALANINE AMINOTRANSFERASE INCREASED [None]
  - ASPARTATE AMINOTRANSFERASE INCREASED [None]
  - LIVER DISORDER [None]
  - PNEUMONIA [None]
